FAERS Safety Report 24318243 (Version 1)
Quarter: 2024Q3

REPORT INFORMATION
  Report Type: Spontaneous
  Country: IT (occurrence: IT)
  Receive Date: 20240913
  Receipt Date: 20240913
  Transmission Date: 20241016
  Serious: Yes (Other)
  Sender: BAUSCH AND LOMB
  Company Number: IT-BAUSCH-BL-2024-013594

PATIENT
  Age: 79 Year
  Sex: Male

DRUGS (1)
  1. IMIQUIMOD [Suspect]
     Active Substance: IMIQUIMOD
     Indication: Basal cell carcinoma
     Dosage: DAILY FOR 5 TIMES A WEEK
     Route: 061

REACTIONS (1)
  - Stevens-Johnson syndrome [Recovering/Resolving]
